FAERS Safety Report 6558419-9 (Version None)
Quarter: 2010Q1

REPORT INFORMATION
  Report Type: 
  Country: None (occurrence: None)
  Receive Date: 20100128
  Receipt Date: 20100128
  Transmission Date: 20100710
  Serious: Yes (Other)
  Sender: FDA-Public Use
  Company Number: None

PATIENT
  Age: 14 Year
  Sex: Male
  Weight: 44.4525 kg

DRUGS (1)
  1. TOPAMAX [Suspect]
     Indication: TOURETTE'S DISORDER
     Dosage: 25MG 3 PO
     Route: 048
     Dates: start: 20070120, end: 20100127

REACTIONS (2)
  - DELAYED PUBERTY [None]
  - GROWTH HORMONE DEFICIENCY [None]
